FAERS Safety Report 13491960 (Version 2)
Quarter: 2017Q2

REPORT INFORMATION
  Report Type: Spontaneous
  Country: FR (occurrence: FR)
  Receive Date: 20170427
  Receipt Date: 20170512
  Transmission Date: 20170830
  Serious: Yes (Other)
  Sender: FDA-Public Use
  Company Number: FR-ASTRAZENECA-2017SE42816

PATIENT
  Age: 15365 Day
  Sex: Male

DRUGS (26)
  1. MAGNESIUM SULFATE. [Concomitant]
     Active Substance: MAGNESIUM SULFATE
     Route: 042
  2. HYPERIUM [Concomitant]
     Active Substance: RILMENIDINE PHOSPHATE
     Dates: start: 20170110
  3. COUMADINE [Concomitant]
     Active Substance: WARFARIN SODIUM
  4. INEXIUM [Suspect]
     Active Substance: ESOMEPRAZOLE
     Indication: PROPHYLAXIS
     Dosage: 40.0MG UNKNOWN
     Route: 048
     Dates: start: 20170109, end: 20170119
  5. TRIATEC [Suspect]
     Active Substance: RAMIPRIL
     Indication: HYPERTENSION
     Route: 048
     Dates: start: 201609, end: 20161206
  6. TRIATEC [Suspect]
     Active Substance: RAMIPRIL
     Indication: HYPERTENSION
     Route: 048
     Dates: start: 20170110, end: 20170127
  7. ALDACTONE [Suspect]
     Active Substance: SPIRONOLACTONE
     Indication: HYPERTENSION
     Route: 048
     Dates: start: 20170113, end: 20170127
  8. DEBRIDAT [Suspect]
     Active Substance: TRIMEBUTINE MALEATE
     Route: 042
     Dates: start: 20170110, end: 20170127
  9. TAHOR [Concomitant]
     Active Substance: ATORVASTATIN CALCIUM
     Dates: start: 20160930
  10. INEXIUM [Suspect]
     Active Substance: ESOMEPRAZOLE
     Indication: PROPHYLAXIS
     Dosage: 40.0MG UNKNOWN
     Route: 065
     Dates: start: 20161028, end: 20161206
  11. PHOSPHONEUROS [Suspect]
     Active Substance: CALCIUM PHOSPHATE, DIBASIC, ANHYDROUS\MAGNESIUM GLYCEROPHOSPHATE\PHOSPHORIC ACID\SODIUM PHOSPHATE, DIBASIC
     Dosage: 50 DROPS 3 TIMES A DAY
     Route: 048
     Dates: start: 20170110, end: 20170127
  12. PARACETAMOL [Concomitant]
     Active Substance: ACETAMINOPHEN
     Route: 042
     Dates: start: 20161208
  13. AMLODIPINE [Concomitant]
     Active Substance: AMLODIPINE BESYLATE
     Dates: start: 20161028
  14. LIORESAL [Concomitant]
     Active Substance: BACLOFEN
     Dates: start: 20170123, end: 20170127
  15. LOVENOX [Concomitant]
     Active Substance: ENOXAPARIN SODIUM
     Dates: start: 20161111
  16. ZOPHREN [Concomitant]
     Active Substance: ONDANSETRON
     Dosage: 4.0MG AS REQUIRED
     Dates: start: 20170126, end: 20170127
  17. INEXIUM [Suspect]
     Active Substance: ESOMEPRAZOLE
     Indication: PROPHYLAXIS
     Route: 042
     Dates: start: 20170120, end: 20170129
  18. LEVETIRACETAM. [Concomitant]
     Active Substance: LEVETIRACETAM
     Route: 042
     Dates: start: 20161207
  19. LIORESAL [Concomitant]
     Active Substance: BACLOFEN
     Dates: start: 20170208
  20. ORAMORPH [Concomitant]
     Active Substance: MORPHINE SULFATE
     Dates: start: 20170123, end: 20170129
  21. ZOPHREN [Concomitant]
     Active Substance: ONDANSETRON
     Dosage: 4.0MG AS REQUIRED
     Dates: start: 20170325
  22. HYPERIUM [Concomitant]
     Active Substance: RILMENIDINE PHOSPHATE
     Dates: start: 20161014, end: 20161207
  23. TEGRETOL [Concomitant]
     Active Substance: CARBAMAZEPINE
     Dates: start: 20161001, end: 20161207
  24. PROZAC [Concomitant]
     Active Substance: FLUOXETINE HYDROCHLORIDE
  25. INEXIUM [Suspect]
     Active Substance: ESOMEPRAZOLE
     Indication: PROPHYLAXIS
     Dosage: 40.0MG UNKNOWN
     Route: 048
     Dates: start: 20170120, end: 20170129
  26. DEBRIDAT [Suspect]
     Active Substance: TRIMEBUTINE MALEATE
     Route: 048
     Dates: start: 20161207, end: 20161215

REACTIONS (6)
  - Eosinophilia [Recovered/Resolved]
  - Thrombocytopenia [Recovered/Resolved]
  - Hepatic enzyme increased [Recovering/Resolving]
  - Lymphopenia [Recovered/Resolved]
  - Rash [Recovered/Resolved]
  - Device related infection [Unknown]

NARRATIVE: CASE EVENT DATE: 20170123
